FAERS Safety Report 4326575-9 (Version None)
Quarter: 2004Q1

REPORT INFORMATION
  Report Type: 
  Country: None (occurrence: None)
  Receive Date: 20040326
  Receipt Date: 20040326
  Transmission Date: 20041129
  Serious: Yes (Other)
  Sender: FDA-Public Use
  Company Number: None

PATIENT
  Age: 13 Month
  Sex: Male
  Weight: 25.01 kg

DRUGS (7)
  1. SYNAGIS [Suspect]
     Indication: PROPHYLAXIS
     Dosage: 1.6 ML, 1.90 ML 1.90 ML
     Dates: start: 20031201
  2. SYNAGIS [Suspect]
     Indication: RESPIRATORY SYNCYTIAL VIRUS INFECTION
     Dosage: 1.6 ML, 1.90 ML 1.90 ML
     Dates: start: 20031201
  3. SYNAGIS [Suspect]
     Indication: PROPHYLAXIS
     Dosage: 1.6 ML, 1.90 ML 1.90 ML
     Dates: start: 20040102
  4. SYNAGIS [Suspect]
     Indication: RESPIRATORY SYNCYTIAL VIRUS INFECTION
     Dosage: 1.6 ML, 1.90 ML 1.90 ML
     Dates: start: 20040102
  5. SYNAGIS [Suspect]
     Indication: PROPHYLAXIS
     Dosage: 1.6 ML, 1.90 ML 1.90 ML
     Dates: start: 20040202
  6. SYNAGIS [Suspect]
     Indication: RESPIRATORY SYNCYTIAL VIRUS INFECTION
     Dosage: 1.6 ML, 1.90 ML 1.90 ML
     Dates: start: 20040202
  7. SYNAGIS [Suspect]

REACTIONS (2)
  - ABNORMAL FAECES [None]
  - DERMATITIS DIAPER [None]
